FAERS Safety Report 25255604 (Version 2)
Quarter: 2025Q2

REPORT INFORMATION
  Report Type: Spontaneous
  Country: IR (occurrence: IR)
  Receive Date: 20250430
  Receipt Date: 20250506
  Transmission Date: 20250717
  Serious: Yes (Disabling, Other)
  Sender: ACCORD
  Company Number: IR-MLMSERVICE-20250415-PI477191-00153-1

PATIENT
  Age: 33 Year
  Sex: Female

DRUGS (2)
  1. FLUOXETINE HYDROCHLORIDE [Suspect]
     Active Substance: FLUOXETINE HYDROCHLORIDE
     Indication: Bulimia nervosa
     Dates: start: 202109, end: 202110
  2. FLUOXETINE HYDROCHLORIDE [Suspect]
     Active Substance: FLUOXETINE HYDROCHLORIDE
     Indication: Depression
     Dates: start: 202109, end: 202110

REACTIONS (3)
  - Persistent genital arousal disorder [Recovered/Resolved]
  - Restless legs syndrome [Recovered/Resolved]
  - Withdrawal syndrome [Recovered/Resolved]

NARRATIVE: CASE EVENT DATE: 20210101
